FAERS Safety Report 9049050 (Version 1)
Quarter: 2013Q1

REPORT INFORMATION
  Report Type: Spontaneous
  Country: US (occurrence: None)
  Receive Date: 20130129
  Receipt Date: 20130129
  Transmission Date: 20140127
  Serious: No
  Sender: FDA-Public Use
  Company Number: None

PATIENT
  Sex: Female

DRUGS (1)
  1. TOPIRAMAE (TOPIRAMATE) (TOPIRAMATE) [Suspect]
     Dosage: 25 MG  DAILY?SEVERAL MONTHS

REACTIONS (1)
  - Drug ineffective [None]
